FAERS Safety Report 10089177 (Version 1)
Quarter: 2014Q2

REPORT INFORMATION
  Report Type: Spontaneous
  Country: US (occurrence: None)
  Receive Date: 20140418
  Receipt Date: 20140418
  Transmission Date: 20141212
  Serious: No
  Sender: FDA-Public Use
  Company Number: None

PATIENT
  Age: 60 Year
  Sex: Male
  Weight: 111.13 kg

DRUGS (1)
  1. BUPROPION HCL XL [Suspect]
     Indication: DEPRESSION
     Dosage: ONE TABLET EACH MORNING  ONCE DAILY TAKEN BY MOUTH
     Route: 048
     Dates: start: 20140417, end: 20140417

REACTIONS (6)
  - Heart rate increased [None]
  - Chest pain [None]
  - Muscular weakness [None]
  - Pain in extremity [None]
  - Dyspnoea [None]
  - Headache [None]
